FAERS Safety Report 7135662-1 (Version None)
Quarter: 2010Q4

REPORT INFORMATION
  Report Type: 
  Country: None (occurrence: None)
  Receive Date: 20101203
  Receipt Date: 20101126
  Transmission Date: 20110411
  Serious: Yes (Other)
  Sender: FDA-Public Use
  Company Number: FR-ROCHE-745434

PATIENT
  Sex: Male

DRUGS (2)
  1. AVASTIN [Suspect]
     Indication: BREAST CANCER METASTATIC
     Route: 042
  2. ZOMETA [Suspect]
     Indication: HYPERCALCAEMIA OF MALIGNANCY
     Route: 065

REACTIONS (1)
  - OSTEONECROSIS OF JAW [None]
